FAERS Safety Report 8796281 (Version 1)
Quarter: 2012Q4

REPORT INFORMATION
  Report Type: 
  Country: US (occurrence: US)
  Receive Date: 20120920
  Receipt Date: 20120920
  Transmission Date: 20130627
  Serious: No
  Sender: FDA-Public Use
  Company Number: US-PFIZER INC-2012232700

PATIENT
  Sex: Female

DRUGS (1)
  1. ZOLOFT [Suspect]
     Indication: PREMENSTRUAL SYNDROME
     Dosage: 50 mg, 1x/day
     Route: 048
     Dates: start: 201207, end: 201209

REACTIONS (5)
  - Weight increased [Unknown]
  - Loss of libido [Unknown]
  - Paraesthesia [Unknown]
  - Chest pain [Unknown]
  - Headache [Unknown]
